FAERS Safety Report 9835425 (Version 2)
Quarter: 2014Q1

REPORT INFORMATION
  Report Type: Spontaneous
  Country: US (occurrence: US)
  Receive Date: 20140122
  Receipt Date: 20140122
  Transmission Date: 20141002
  Serious: No
  Sender: FDA-Public Use
  Company Number: US-BRISTOL-MYERS SQUIBB COMPANY-19588938

PATIENT
  Age: 80 Year
  Sex: Female

DRUGS (5)
  1. ELIQUIS [Suspect]
     Indication: ATRIAL FIBRILLATION
     Route: 048
     Dates: start: 20131001, end: 20131017
  2. ARMOUR THYROID [Concomitant]
  3. LOSARTAN [Concomitant]
  4. ATENOLOL [Concomitant]
  5. XANAX [Concomitant]

REACTIONS (3)
  - Skin exfoliation [Recovered/Resolved]
  - Back pain [Unknown]
  - Pain in extremity [Recovered/Resolved]
